FAERS Safety Report 9638919 (Version 2)
Quarter: 2013Q4

REPORT INFORMATION
  Report Type: Spontaneous
  Country: US (occurrence: US)
  Receive Date: 20131022
  Receipt Date: 20131022
  Transmission Date: 20140711
  Serious: No
  Sender: FDA-Public Use
  Company Number: US-BRISTOL-MYERS SQUIBB COMPANY-19083054

PATIENT
  Age: 61 Year
  Sex: Male

DRUGS (6)
  1. ELIQUIS [Suspect]
     Route: 048
     Dates: start: 20130604
  2. METOLAZONE [Concomitant]
  3. POTASSIUM CHLORIDE [Concomitant]
  4. NITROGLYCERINE [Concomitant]
  5. FUROSEMIDE [Concomitant]
  6. DIGOXIN [Concomitant]

REACTIONS (2)
  - Pruritus [Not Recovered/Not Resolved]
  - Dry throat [Not Recovered/Not Resolved]
